FAERS Safety Report 12427384 (Version 1)
Quarter: 2016Q2

REPORT INFORMATION
  Report Type: Report from Study
  Country: FR (occurrence: FR)
  Receive Date: 20160602
  Receipt Date: 20160602
  Transmission Date: 20160815
  Serious: Yes (Disabling, Other)
  Sender: FDA-Public Use
  Company Number: FR-009507513-1602FRA005732

PATIENT
  Age: 75 Year
  Sex: Male
  Weight: 70 kg

DRUGS (8)
  1. BISOPROLOL [Concomitant]
     Active Substance: BISOPROLOL
     Dosage: 2.5 MG 1/DAY
  2. MK-0000 (325) [Suspect]
     Active Substance: INVESTIGATIONAL PRODUCT
  3. GLIMEPIRIDE. [Concomitant]
     Active Substance: GLIMEPIRIDE
     Dosage: 2 MG, 1/DAY
     Dates: start: 20150101
  4. TAREG [Concomitant]
     Active Substance: VALSARTAN
     Dosage: 160 MG 1/DAY
  5. KARDEGIC [Concomitant]
     Active Substance: ASPIRIN LYSINE
     Dosage: 75 MG 1/DAY
  6. ALDACTONE [Concomitant]
     Active Substance: SPIRONOLACTONE
     Dosage: 50 MG 1/DAY
  7. JANUVIA [Suspect]
     Active Substance: SITAGLIPTIN PHOSPHATE
     Indication: TYPE 2 DIABETES MELLITUS
     Dosage: 100 MG, QD
     Route: 048
     Dates: start: 201412, end: 201602
  8. LESCOL [Concomitant]
     Active Substance: FLUVASTATIN SODIUM
     Dosage: 80 MG 1/DAY

REACTIONS (7)
  - Peripheral swelling [Unknown]
  - Osteoarthritis [Not Recovered/Not Resolved]
  - Musculoskeletal pain [Recovered/Resolved]
  - Hip surgery [Unknown]
  - Incorrect dose administered [Unknown]
  - Arthralgia [Recovered/Resolved]
  - Arthralgia [Unknown]

NARRATIVE: CASE EVENT DATE: 201511
